FAERS Safety Report 4734842-X (Version None)
Quarter: 2005Q3

REPORT INFORMATION
  Report Type: 
  Country: None (occurrence: None)
  Receive Date: 20050804
  Receipt Date: 20050105
  Transmission Date: 20060218
  Serious: Yes (Hospitalization)
  Sender: FDA-Public Use
  Company Number: US-BRISTOL-MYERS SQUIBB COMPANY-12814133

PATIENT
  Age: 61 Year
  Sex: Male
  Weight: 77 kg

DRUGS (13)
  1. WARFARIN SODIUM [Suspect]
     Indication: AORTIC VALVE STENOSIS
     Route: 048
  2. WARFARIN SODIUM [Suspect]
     Indication: HEART VALVE REPLACEMENT
     Route: 048
  3. ASPIRIN [Concomitant]
  4. ATENOLOL [Concomitant]
     Dosage: ONGOING 3-4 YEARS
  5. COENZYME Q10 [Concomitant]
  6. FLAXSEED OIL [Concomitant]
  7. FOLIC ACID [Concomitant]
  8. IRON [Concomitant]
  9. MULTI-VITAMIN [Concomitant]
  10. SYNTHROID [Concomitant]
  11. ASCORBIC ACID [Concomitant]
  12. ZETIA [Concomitant]
  13. ZOCOR [Concomitant]

REACTIONS (2)
  - COLON NEOPLASM [None]
  - INTERNATIONAL NORMALISED RATIO ABNORMAL [None]
